FAERS Safety Report 4737732-1 (Version None)
Quarter: 2005Q3

REPORT INFORMATION
  Report Type: 
  Country: None (occurrence: None)
  Receive Date: 20050802
  Receipt Date: 20050718
  Transmission Date: 20060218
  Serious: Yes (Death)
  Sender: FDA-Public Use
  Company Number: S05-FRA-02611-01

PATIENT
  Age: 39 Year
  Sex: Male

DRUGS (12)
  1. CITALOPRAM HYDROBROMIDE [Suspect]
  2. MORPHINE [Suspect]
  3. PHOLCODINE TAB [Suspect]
  4. OMEPRAZOLE [Concomitant]
  5. AMOXICILLIN [Concomitant]
  6. OXCARBAZEPINE [Concomitant]
  7. EXOMUC            (ACETYLCYSTEINE) [Concomitant]
  8. AKINETON [Concomitant]
  9. NOZINAN             (LEVOMEPROMAZINE) [Concomitant]
  10. IMOVANE(ZOPICLONE) [Concomitant]
  11. HALOPERIDOL [Concomitant]
  12. ALPRAZOLAM [Concomitant]

REACTIONS (34)
  - ANAPHYLACTIC REACTION [None]
  - ANGIONEUROTIC OEDEMA [None]
  - ATRIOVENTRICULAR BLOCK [None]
  - BRAIN OEDEMA [None]
  - BUNDLE BRANCH BLOCK LEFT [None]
  - BUNDLE BRANCH BLOCK RIGHT [None]
  - CARDIO-RESPIRATORY ARREST [None]
  - CORONARY ARTERY ATHEROSCLEROSIS [None]
  - DISSEMINATED INTRAVASCULAR COAGULATION [None]
  - DRUG LEVEL ABOVE THERAPEUTIC [None]
  - DRUG TOXICITY [None]
  - DYSPNOEA [None]
  - EPIGLOTTITIS [None]
  - FIBROSIS [None]
  - GLASGOW COMA SCALE ABNORMAL [None]
  - HAEMATOMA [None]
  - HEPATIC CONGESTION [None]
  - HYPERKALAEMIA [None]
  - HYPERSENSITIVITY [None]
  - INTUBATION COMPLICATION [None]
  - LACTIC ACIDOSIS [None]
  - LARYNGEAL OEDEMA [None]
  - METABOLIC DISORDER [None]
  - MULTIPLE DRUG OVERDOSE [None]
  - MYDRIASIS [None]
  - PERICARDIAL DRAINAGE TEST ABNORMAL [None]
  - PERITONEAL EFFUSION [None]
  - PHARYNGEAL OEDEMA [None]
  - PLEURAL EFFUSION [None]
  - PROCEDURAL COMPLICATION [None]
  - PULMONARY OEDEMA [None]
  - RENAL FAILURE ACUTE [None]
  - TOXICOLOGIC TEST ABNORMAL [None]
  - TROPONIN INCREASED [None]
